FAERS Safety Report 19241235 (Version 1)
Quarter: 2021Q2

REPORT INFORMATION
  Report Type: Spontaneous
  Country: US (occurrence: US)
  Receive Date: 20210511
  Receipt Date: 20210511
  Transmission Date: 20210717
  Serious: Yes (Hospitalization)
  Sender: FDA-Public Use
  Company Number: None

PATIENT
  Age: 36 Year
  Sex: Male
  Weight: 122.9 kg

DRUGS (2)
  1. CARBOPLATIN. [Suspect]
     Active Substance: CARBOPLATIN
     Dates: end: 20210426
  2. ETOSPOSIDE (VP?16) [Suspect]
     Active Substance: ETOPOSIDE
     Dates: end: 20210426

REACTIONS (6)
  - Tachycardia [None]
  - Gastritis [None]
  - Pancytopenia [None]
  - Pyrexia [None]
  - Tachypnoea [None]
  - Hypotension [None]

NARRATIVE: CASE EVENT DATE: 20210503
